FAERS Safety Report 20693419 (Version 1)
Quarter: 2022Q2

REPORT INFORMATION
  Report Type: Spontaneous
  Country: PL (occurrence: PL)
  Receive Date: 20220410
  Receipt Date: 20220410
  Transmission Date: 20220720
  Serious: Yes (Life-Threatening, Other)
  Sender: FDA-Public Use
  Company Number: PL-AMGEN-POLSP2022054734

PATIENT
  Age: 55 Year

DRUGS (4)
  1. DARATUMUMAB [Suspect]
     Active Substance: DARATUMUMAB
     Indication: Product used for unknown indication
     Dosage: 16 MILLIGRAM/SQ. METER, ON DAY 1, 7, 15 OF CYCLE
     Route: 065
     Dates: start: 20200702
  2. KYPROLIS [Suspect]
     Active Substance: CARFILZOMIB
     Indication: Product used for unknown indication
     Dosage: 20 MILLIGRAM/SQ. METER, ON DAY 1, CYCLE 1
     Route: 065
     Dates: start: 20200702
  3. KYPROLIS [Suspect]
     Active Substance: CARFILZOMIB
     Dosage: 70 MILLIGRAM/SQ. METER, ON DAYS 8 AND 15
     Route: 065
  4. DEXAMETHASONE [Suspect]
     Active Substance: DEXAMETHASONE
     Indication: Product used for unknown indication
     Dosage: 40 MILLIGRAM, ON DAYS 1, 8 AND 15
     Route: 065
     Dates: start: 20200702

REACTIONS (5)
  - Ventricular hypokinesia [Unknown]
  - Thrombocytopenia [Unknown]
  - Chest pain [Unknown]
  - Left ventricular enlargement [Unknown]
  - Normocytic anaemia [Unknown]

NARRATIVE: CASE EVENT DATE: 20200101
